FAERS Safety Report 6285037-2 (Version None)
Quarter: 2009Q3

REPORT INFORMATION
  Report Type: 
  Country: None (occurrence: None)
  Receive Date: 20090727
  Receipt Date: 20090724
  Transmission Date: 20100115
  Serious: No
  Sender: FDA-Public Use
  Company Number: US-B.I. PHARMACEUTICALS,INC./RIDGEFIELD-2009-BP-06748BP

PATIENT
  Sex: Female

DRUGS (9)
  1. CATAPRES-TTS-1 [Suspect]
     Indication: HYPERTENSION
     Dosage: 0.1 MG
     Route: 061
     Dates: start: 20090301, end: 20090503
  2. CATAPRES-TTS-1 [Suspect]
     Dosage: 0.2 MG
     Route: 061
     Dates: start: 20090504, end: 20090518
  3. LOTREL [Concomitant]
     Indication: CARDIAC DISORDER
  4. LOPRESSOR [Concomitant]
     Indication: CARDIAC DISORDER
  5. PRILOSEC [Concomitant]
     Indication: GASTROOESOPHAGEAL REFLUX DISEASE
  6. DETROL [Concomitant]
     Indication: INCONTINENCE
  7. LIBRIUM [Concomitant]
     Indication: NERVOUSNESS
  8. WATER PILL [Concomitant]
     Indication: CARDIAC DISORDER
  9. POTASSIUM CHLORIDE [Concomitant]
     Indication: CARDIAC DISORDER

REACTIONS (2)
  - BLOOD PRESSURE INCREASED [None]
  - DRY MOUTH [None]
